FAERS Safety Report 5241348-0 (Version None)
Quarter: 2007Q1

REPORT INFORMATION
  Report Type: 
  Country: None (occurrence: None)
  Receive Date: 20070220
  Receipt Date: 20070126
  Transmission Date: 20070707
  Serious: Yes (Other)
  Sender: FDA-Public Use
  Company Number: FI-RB-005276-07

PATIENT
  Age: 35 Year
  Sex: Male

DRUGS (5)
  1. SUBOXONE [Suspect]
     Indication: DRUG DEPENDENCE
     Route: 060
     Dates: start: 20051207
  2. DORMICUM [Concomitant]
     Indication: DRUG USE FOR UNKNOWN INDICATION
     Dosage: 7.5  - 15MG DAILY
     Route: 048
  3. ALPROX [Concomitant]
     Indication: DRUG USE FOR UNKNOWN INDICATION
     Route: 048
  4. SIRDALUD [Concomitant]
     Indication: DRUG USE FOR UNKNOWN INDICATION
     Dosage: 6 - 12MG PER DAY
     Route: 048
  5. SUBUTEX [Concomitant]
     Dosage: DOSAGE UNKNOWN
     Route: 065

REACTIONS (2)
  - TOOTH DISORDER [None]
  - TOOTH LOSS [None]
